FAERS Safety Report 8053824-6 (Version None)
Quarter: 2012Q1

REPORT INFORMATION
  Report Type: 
  Country: None (occurrence: None)
  Receive Date: 20120110
  Receipt Date: 20111228
  Transmission Date: 20120608
  Serious: Yes (Hospitalization, Disabling)
  Sender: FDA-Public Use
  Company Number: 1000026716

PATIENT
  Age: 32 Year
  Sex: Female

DRUGS (1)
  1. ESCITALOPRAM OXALATE [Suspect]
     Dosage: 20 MG (20 MG,1 IN 1 D),ORAL
     Route: 048
     Dates: start: 20091001, end: 20101001

REACTIONS (6)
  - NEURALGIA [None]
  - PSYCHOSOMATIC DISEASE [None]
  - PAIN [None]
  - PAIN IN EXTREMITY [None]
  - ABASIA [None]
  - WEIGHT DECREASED [None]
